FAERS Safety Report 5810367-5 (Version None)
Quarter: 2008Q3

REPORT INFORMATION
  Report Type: 
  Country: None (occurrence: None)
  Receive Date: 20080715
  Receipt Date: 20080701
  Transmission Date: 20090109
  Serious: No
  Sender: FDA-Public Use
  Company Number: US-ELI_LILLY_AND_COMPANY-US200806002505

PATIENT
  Sex: Female
  Weight: 60.771 kg

DRUGS (17)
  1. FORTEO [Suspect]
     Indication: OSTEOPOROSIS
     Dosage: 20 UG, DAILY (1/D)
     Route: 058
     Dates: start: 20061220
  2. PLAVIX [Concomitant]
     Indication: PROPHYLAXIS
     Dosage: 75 MG, UNK
     Route: 048
  3. TOPAMAX [Concomitant]
     Dosage: 50 MG, UNK
     Route: 048
  4. LYRICA [Concomitant]
     Dosage: 100 MG, 3/D
     Route: 048
  5. LIPITOR [Concomitant]
     Indication: BLOOD CHOLESTEROL
     Dosage: 80 MG, UNK
     Route: 048
  6. ARICEPT [Concomitant]
     Dosage: 10 MG, DAILY (1/D)
  7. ASPIRIN [Concomitant]
     Dosage: 81 MG, DAILY (1/D)
     Route: 048
  8. CALTRATE PLUS [Concomitant]
     Dosage: UNK, 2/D
     Route: 048
  9. CENTRUM SILVER [Concomitant]
     Dosage: UNK, DAILY (1/D)
     Route: 048
  10. DARVOCET-N 100 [Concomitant]
     Dosage: UNK, AS NEEDED
     Route: 048
  11. DHEA [Concomitant]
     Dosage: 50 MG, DAILY (1/D)
     Route: 048
  12. DIOVAN [Concomitant]
     Dosage: 160 MG, DAILY (1/D)
     Route: 048
  13. METOPROLOL [Concomitant]
     Dosage: 100 MG, DAILY (1/D)
     Route: 048
  14. QUINAPRIL [Concomitant]
     Dosage: 10 MG, DAILY (1/D)
     Route: 048
  15. VITAMIN B-12 [Concomitant]
     Dosage: UNK, MONTHLY (1/M)
     Route: 058
  16. VITAMIN D [Concomitant]
     Dosage: 50000 IU, OTHER
     Route: 048
  17. MACROBID [Concomitant]
     Dosage: 100 MG, 2/D
     Route: 048

REACTIONS (1)
  - NO ADVERSE EVENT [None]
